FAERS Safety Report 5919511-2 (Version None)
Quarter: 2008Q3

REPORT INFORMATION
  Report Type: 
  Country: None (occurrence: None)
  Receive Date: 20080909
  Receipt Date: 20080514
  Transmission Date: 20090109
  Serious: Yes (Hospitalization, Other)
  Sender: FDA-Public Use
  Company Number: 163-20785-07060018

PATIENT
  Age: 76 Year
  Sex: Female
  Weight: 62.72 kg

DRUGS (3)
  1. THALOMID [Suspect]
     Indication: UTERINE CANCER
     Dosage: 200MG, DOSE ESCALATED BY 200MG INCREMENTS Q2W TO A MAX OF 1000 MG/DAY, QHS, ORAL
     Route: 048
     Dates: start: 20070305, end: 20070430
  2. ADVIL [Concomitant]
  3. COMPAZINE [Concomitant]

REACTIONS (6)
  - ALANINE AMINOTRANSFERASE INCREASED [None]
  - ASPARTATE AMINOTRANSFERASE INCREASED [None]
  - BLOOD ALKALINE PHOSPHATASE INCREASED [None]
  - DEHYDRATION [None]
  - INTESTINAL OBSTRUCTION [None]
  - URETERIC OBSTRUCTION [None]
